FAERS Safety Report 6187016-2 (Version None)
Quarter: 2009Q2

REPORT INFORMATION
  Report Type: 
  Country: None (occurrence: None)
  Receive Date: 20090512
  Receipt Date: 20090428
  Transmission Date: 20091009
  Serious: Yes (Other)
  Sender: FDA-Public Use
  Company Number: JP-BAYER-200911364BYL

PATIENT
  Age: 61 Year
  Sex: Male
  Weight: 66 kg

DRUGS (10)
  1. FLUDARA [Suspect]
     Indication: MYELODYSPLASTIC SYNDROME
     Dosage: AS USED: 25 MG/M2  UNIT DOSE: 50 MG
     Route: 042
     Dates: start: 20080712, end: 20080716
  2. BUSULFEX [Concomitant]
     Indication: MYELODYSPLASTIC SYNDROME
     Dosage: AS USED: 3.2 MG/KG
     Route: 042
     Dates: start: 20080712, end: 20080715
  3. CYLOCIDE [Concomitant]
     Indication: MYELODYSPLASTIC SYNDROME
     Dosage: AS USED: 100 MG/M2
     Route: 041
     Dates: start: 20080711, end: 20080716
  4. METHOTREXATE [Concomitant]
     Dosage: AS USED: 9 MG
     Route: 042
     Dates: start: 20080721, end: 20080721
  5. METHOTREXATE [Concomitant]
     Dosage: AS USED: 9 MG
     Route: 042
     Dates: start: 20080729, end: 20080729
  6. METHOTREXATE [Concomitant]
     Dosage: AS USED: 9 MG
     Route: 042
     Dates: start: 20080724, end: 20080724
  7. METHOTREXATE [Concomitant]
     Dosage: AS USED: 9 MG
     Route: 042
     Dates: start: 20080719, end: 20080719
  8. DEPAKENE [Concomitant]
     Indication: CONVULSION PROPHYLAXIS
     Dosage: TOTAL DAILY DOSE: 1200 MG  UNIT DOSE: 200 MG
     Route: 048
     Dates: start: 20080709, end: 20080715
  9. CONCENTRATED RED CELLS [Concomitant]
     Indication: PACKED RED BLOOD CELL TRANSFUSION
     Route: 042
     Dates: start: 20080717, end: 20080818
  10. PLATELETS [Concomitant]
     Indication: PLATELET TRANSFUSION
     Route: 042
     Dates: start: 20080715, end: 20080722

REACTIONS (2)
  - ACUTE GRAFT VERSUS HOST DISEASE [None]
  - FEBRILE NEUTROPENIA [None]
